FAERS Safety Report 5090705-4 (Version None)
Quarter: 2006Q3

REPORT INFORMATION
  Report Type: 
  Country: None (occurrence: None)
  Receive Date: 20060823
  Receipt Date: 20060815
  Transmission Date: 20061208
  Serious: Yes (Hospitalization)
  Sender: FDA-Public Use
  Company Number: 228795

PATIENT
  Age: 56 Year
  Sex: Male
  Weight: 78.4 kg

DRUGS (7)
  1. MABTHERA                     (RITUXIMAB) [Suspect]
     Indication: LYMPHOMA
     Dates: start: 20060314
  2. FLUDARABINE PHOSPHATE [Suspect]
     Indication: LYMPHOMA
  3. MITOXANTRONE [Suspect]
     Indication: LYMPHOMA
  4. CYCLOPHOSPHAMIDE [Suspect]
     Indication: LYMPHOMA
  5. FLUCONAZOLE [Concomitant]
  6. SEPTIN (SULFAMETHOXAZOLE, TRIMETHOPRIM) [Concomitant]
  7. CHLORHEXIDINE MOUTHWASH           (CHLORHEXIDINE GLUCONATE) [Concomitant]

REACTIONS (1)
  - FEBRILE NEUTROPENIA [None]
